FAERS Safety Report 15130140 (Version 1)
Quarter: 2018Q3

REPORT INFORMATION
  Report Type: Spontaneous
  Country: US (occurrence: US)
  Receive Date: 20180711
  Receipt Date: 20180711
  Transmission Date: 20181010
  Serious: No
  Sender: FDA-Public Use
  Company Number: US-009507513-1806USA005405

PATIENT
  Age: 19 Year
  Sex: Female
  Weight: 109.3 kg

DRUGS (2)
  1. NEXPLANON [Suspect]
     Active Substance: ETONOGESTREL
     Dosage: 1 ROD
     Route: 059
     Dates: start: 20180522
  2. NEXPLANON [Suspect]
     Active Substance: ETONOGESTREL
     Dosage: 1 ROD
     Route: 059
     Dates: start: 20151105, end: 20180522

REACTIONS (3)
  - Device breakage [Recovered/Resolved]
  - Implant site irritation [Recovered/Resolved]
  - Weight increased [Recovered/Resolved]
